FAERS Safety Report 6059952-9 (Version None)
Quarter: 2009Q1

REPORT INFORMATION
  Report Type: 
  Country: None (occurrence: None)
  Receive Date: 20090130
  Receipt Date: 20090119
  Transmission Date: 20090719
  Serious: Yes (Hospitalization)
  Sender: FDA-Public Use
  Company Number: FR-ROCHE-610610

PATIENT
  Age: 56 Year
  Sex: Male

DRUGS (6)
  1. VALIUM [Suspect]
     Route: 065
  2. HALDOL [Suspect]
     Route: 065
  3. SOLIAN [Suspect]
     Route: 065
  4. LOXAPAC [Suspect]
     Route: 065
  5. ZYPREXA [Suspect]
     Route: 065
  6. LEPTICUR [Suspect]
     Route: 065

REACTIONS (1)
  - PANCYTOPENIA [None]
